FAERS Safety Report 6003003-9 (Version None)
Quarter: 2008Q4

REPORT INFORMATION
  Report Type: 
  Country: None (occurrence: None)
  Receive Date: 20081215
  Receipt Date: 20080618
  Transmission Date: 20090506
  Serious: No
  Sender: FDA-Public Use
  Company Number: US-AMGEN-KDL287998

PATIENT
  Sex: Female

DRUGS (4)
  1. ENBREL [Suspect]
     Indication: RHEUMATOID ARTHRITIS
     Route: 058
     Dates: start: 20080515
  2. ARAVA [Concomitant]
     Route: 048
     Dates: start: 20060401
  3. PLAQUENIL [Concomitant]
     Route: 048
     Dates: start: 20021001
  4. METHOTREXATE [Concomitant]
     Route: 048

REACTIONS (1)
  - DIZZINESS [None]
